FAERS Safety Report 8564043-9 (Version None)
Quarter: 2012Q3

REPORT INFORMATION
  Report Type: 
  Country: None (occurrence: None)
  Receive Date: 20120723
  Receipt Date: 20120705
  Transmission Date: 20120928
  Serious: Yes (Hospitalization, Disabling, Other)
  Sender: FDA-Public Use
  Company Number: 2012PROUSA01565

PATIENT
  Age: 70 Year
  Sex: Male
  Weight: 88 kg

DRUGS (19)
  1. ACETAMINOPHEN [Concomitant]
  2. ASPIRIN [Concomitant]
  3. LISINOPRIL [Concomitant]
  4. ZOLEDRONIC ACID [Concomitant]
  5. DIPHENHYDRAMIN HCL (DIPHENHYDRAMINE HYDROCHLORIDE) [Concomitant]
  6. LEVAQUIN [Concomitant]
  7. CALTRATE (CALCIUM CARBONATE, COLECALCIFEROL) [Concomitant]
  8. VICODIN [Concomitant]
  9. CASODEX [Concomitant]
  10. LIPITOR [Concomitant]
  11. TOPROL-XL [Concomitant]
  12. LANTUS [Concomitant]
  13. PROVENGE [Suspect]
     Indication: PROSTATE CANCER METASTATIC
     Dosage: 250 ML, SINGLE, INTRAVENOUS
     Route: 042
     Dates: start: 20120514, end: 20120514
  14. DIGOXIN [Concomitant]
  15. TRICOR [Concomitant]
  16. COUMADIN [Concomitant]
  17. NOVOLOG [Concomitant]
  18. CALTRATE  + D (CALCIUM CARBONATE, COLECALCIFEROL) [Concomitant]
  19. PLENDIL [Concomitant]

REACTIONS (4)
  - CAROTID ARTERY STENOSIS [None]
  - ENCEPHALOPATHY [None]
  - INTERNATIONAL NORMALISED RATIO DECREASED [None]
  - CEREBROVASCULAR ACCIDENT [None]
